FAERS Safety Report 21280624 (Version 1)
Quarter: 2022Q3

REPORT INFORMATION
  Report Type: Spontaneous
  Country: CN (occurrence: CN)
  Receive Date: 20220901
  Receipt Date: 20220901
  Transmission Date: 20221026
  Serious: Yes (Other)
  Sender: FDA-Public Use
  Company Number: CN-ASTELLAS-2022US030844

PATIENT
  Sex: Female

DRUGS (1)
  1. ISAVUCONAZOLE [Suspect]
     Active Substance: ISAVUCONAZOLE
     Indication: Mucormycosis
     Route: 048

REACTIONS (5)
  - Bronchiectasis [Unknown]
  - Tachypnoea [Unknown]
  - Drug ineffective [Unknown]
  - Underdose [Unknown]
  - Off label use [Unknown]
